FAERS Safety Report 8345098-3 (Version None)
Quarter: 2012Q2

REPORT INFORMATION
  Report Type: 
  Country: None (occurrence: None)
  Receive Date: 20120508
  Receipt Date: 20120427
  Transmission Date: 20120825
  Serious: No
  Sender: FDA-Public Use
  Company Number: US-BAYER-2012-043897

PATIENT
  Age: 17 Year
  Sex: Female
  Weight: 50 kg

DRUGS (1)
  1. NAPROXEN SODIUM [Suspect]

REACTIONS (4)
  - NAUSEA [None]
  - TREMOR [None]
  - DIZZINESS [None]
  - PALLOR [None]
